FAERS Safety Report 25800770 (Version 1)
Quarter: 2025Q3

REPORT INFORMATION
  Report Type: Spontaneous
  Country: US (occurrence: US)
  Receive Date: 20250915
  Receipt Date: 20250915
  Transmission Date: 20251021
  Serious: No
  Sender: SANOFI AVENTIS
  Company Number: US-SA-2025SA271561

PATIENT
  Sex: Female

DRUGS (16)
  1. DUPIXENT [Suspect]
     Active Substance: DUPILUMAB
     Indication: Dermatitis atopic
     Dosage: 300 MG, QOW
     Route: 058
  2. BENZONATATE [Concomitant]
     Active Substance: BENZONATATE
  3. BIOTIN [BIOTIN;CALCIUM PHOSPHATE DIBASIC] [Concomitant]
  4. CALCIUM\MAGNESIUM [Concomitant]
     Active Substance: CALCIUM\MAGNESIUM
  5. CARVEDILOL [Concomitant]
     Active Substance: CARVEDILOL
  6. CEFDINIR [Concomitant]
     Active Substance: CEFDINIR
  7. DORZOLAMIDE [Concomitant]
     Active Substance: DORZOLAMIDE
  8. ENTRESTO [Concomitant]
     Active Substance: SACUBITRIL\VALSARTAN
  9. ESTRADIOL [Concomitant]
     Active Substance: ESTRADIOL
  10. FORTEO [Concomitant]
     Active Substance: TERIPARATIDE
  11. FUROSEMIDE [Concomitant]
     Active Substance: FUROSEMIDE
  12. LATANOPROST [Concomitant]
     Active Substance: LATANOPROST
  13. VITAMINS NOS [Concomitant]
     Active Substance: VITAMINS
  14. PROBIOTICS NOS [Concomitant]
     Active Substance: PROBIOTICS NOS
  15. ROSUVASTATIN [Concomitant]
     Active Substance: ROSUVASTATIN
  16. TRIAMCINOLONE [Concomitant]
     Active Substance: TRIAMCINOLONE

REACTIONS (1)
  - Eye irritation [Recovered/Resolved]
